FAERS Safety Report 6179236-8 (Version None)
Quarter: 2009Q2

REPORT INFORMATION
  Report Type: 
  Country: None (occurrence: None)
  Receive Date: 20090430
  Receipt Date: 20090428
  Transmission Date: 20091009
  Serious: Yes (Other)
  Sender: FDA-Public Use
  Company Number: 1000003084

PATIENT
  Age: 70 Year
  Sex: Male

DRUGS (15)
  1. NAMENDA [Suspect]
     Indication: DEMENTIA ALZHEIMER'S TYPE
     Dosage: 5 MG (5 MG, 1 IN 1 D), ORAL
     Route: 048
     Dates: start: 20081024, end: 20081024
  2. NAMENDA [Suspect]
     Indication: DEMENTIA ALZHEIMER'S TYPE
     Dosage: 5 MG (5 MG, 1 IN 1 D), ORAL
     Route: 048
     Dates: start: 20081105, end: 20081109
  3. NIFEDIPINE [Concomitant]
  4. NITROGLYCERIN [Concomitant]
  5. OMEPRAZOLE [Concomitant]
  6. ACETAMINOPHEN [Concomitant]
  7. DOCUSATE [Concomitant]
  8. HYDROCHLOROTHIAZIDE [Concomitant]
  9. SENOKOT [Concomitant]
  10. MAGNESIUM HYDROXIDE TAB [Concomitant]
  11. LORAZEPAM [Concomitant]
  12. MULTI-VITAMIN [Concomitant]
  13. OLANZAPINE [Concomitant]
  14. DILANTIN (100 MILLIGRAM) [Concomitant]
  15. DONEPEZIL HCL [Concomitant]

REACTIONS (2)
  - BLOOD PROLACTIN INCREASED [None]
  - CONVULSION [None]
